FAERS Safety Report 23162803 (Version 1)
Quarter: 2023Q4

REPORT INFORMATION
  Report Type: Spontaneous
  Country: US (occurrence: US)
  Receive Date: 20231109
  Receipt Date: 20231109
  Transmission Date: 20240110
  Serious: No
  Sender: FDA-Public Use
  Company Number: US-BIOGEN-2023BI01221933

PATIENT
  Age: 45 Year
  Sex: Male

DRUGS (2)
  1. VUMERITY [Suspect]
     Active Substance: DIROXIMEL FUMARATE
     Indication: Multiple sclerosis
     Dosage: STARTING DOSE X 7 DAYS
     Route: 050
     Dates: start: 20230808, end: 20230814
  2. VUMERITY [Suspect]
     Active Substance: DIROXIMEL FUMARATE
     Dosage: MAINTENANCE DOSE AFTER 231MG DOSE
     Route: 050
     Dates: start: 20230815, end: 20231009

REACTIONS (8)
  - Abdominal discomfort [Unknown]
  - Hyperhidrosis [Unknown]
  - Weight decreased [Unknown]
  - Flushing [Unknown]
  - Feeling hot [Unknown]
  - Rhinorrhoea [Unknown]
  - Diarrhoea [Unknown]
  - Gastrointestinal disorder [Recovered/Resolved]

NARRATIVE: CASE EVENT DATE: 20230801
